FAERS Safety Report 6133733-X (Version None)
Quarter: 2009Q1

REPORT INFORMATION
  Report Type: 
  Country: None (occurrence: None)
  Receive Date: 20090326
  Receipt Date: 20090319
  Transmission Date: 20090719
  Serious: Yes (Other)
  Sender: FDA-Public Use
  Company Number: B0566781A

PATIENT
  Age: 59 Year
  Sex: Female

DRUGS (2)
  1. SERETIDE [Suspect]
     Indication: ASTHMA
     Route: 055
     Dates: start: 20081020
  2. SALBUTAMOL [Concomitant]
     Route: 065

REACTIONS (1)
  - HYPERTENSIVE CRISIS [None]
